FAERS Safety Report 19224976 (Version 3)
Quarter: 2021Q3

REPORT INFORMATION
  Report Type: Report from Study
  Country: US (occurrence: US)
  Receive Date: 20210506
  Receipt Date: 20210814
  Transmission Date: 20211014
  Serious: Yes (Hospitalization, Other)
  Sender: FDA-Public Use
  Company Number: NVSC2021US096599

PATIENT
  Sex: Female

DRUGS (2)
  1. ENTRESTO [Suspect]
     Active Substance: SACUBITRIL\VALSARTAN
     Dosage: 50 MG, BID (24/26 MG)
     Route: 048
  2. ENTRESTO [Suspect]
     Active Substance: SACUBITRIL\VALSARTAN
     Indication: PRODUCT USED FOR UNKNOWN INDICATION
     Dosage: 50 MG, BID (24/26 MG)
     Route: 048

REACTIONS (11)
  - Fluid retention [Unknown]
  - Fall [Unknown]
  - Pulmonary embolism [Unknown]
  - Pain [Recovering/Resolving]
  - Urinary tract infection [Unknown]
  - Sepsis [Unknown]
  - Arthralgia [Recovering/Resolving]
  - Rib fracture [Unknown]
  - Myocardial infarction [Unknown]
  - Hypokalaemia [Unknown]
  - Gait disturbance [Unknown]
